FAERS Safety Report 20725624 (Version 1)
Quarter: 2022Q2

REPORT INFORMATION
  Report Type: Spontaneous
  Country: DE (occurrence: DE)
  Receive Date: 20220419
  Receipt Date: 20220419
  Transmission Date: 20220721
  Serious: Yes (Other)
  Sender: FDA-Public Use
  Company Number: None

PATIENT
  Age: 73 Year
  Sex: Female

DRUGS (1)
  1. VALSARTAN [Suspect]
     Active Substance: VALSARTAN
     Indication: Hypertension
     Dosage: 80 MILLIGRAM, QD, FILM-COATED TABLET

REACTIONS (4)
  - Blood pressure systolic increased [Unknown]
  - Malaise [Unknown]
  - Headache [Unknown]
  - Product quality issue [Unknown]

NARRATIVE: CASE EVENT DATE: 20220225
